FAERS Safety Report 23145191 (Version 1)
Quarter: 2023Q4

REPORT INFORMATION
  Report Type: Spontaneous
  Country: DE (occurrence: DE)
  Receive Date: 20231103
  Receipt Date: 20231103
  Transmission Date: 20240110
  Serious: Yes (Life-Threatening, Hospitalization, Other)
  Sender: FDA-Public Use
  Company Number: DE-PFIZER INC-PV202300171110

PATIENT
  Age: 65 Year
  Sex: Male

DRUGS (4)
  1. VORICONAZOLE [Suspect]
     Active Substance: VORICONAZOLE
     Indication: Prophylaxis
     Dosage: DAY 1- 17
     Route: 065
  2. VORICONAZOLE [Suspect]
     Active Substance: VORICONAZOLE
     Dosage: DAY 45-49
     Route: 065
  3. ACYCLOVIR [Concomitant]
     Active Substance: ACYCLOVIR
     Dosage: DAY 1-38
     Route: 065
  4. CIPROFLOXACIN [Concomitant]
     Active Substance: CIPROFLOXACIN
     Dosage: DAY 1-2
     Route: 065

REACTIONS (7)
  - Bronchopulmonary aspergillosis [Recovered/Resolved]
  - Pneumocystis jirovecii infection [Unknown]
  - Drug ineffective [Recovered/Resolved]
  - Venous thrombosis [Unknown]
  - Herpes simplex [Unknown]
  - Klebsiella infection [Unknown]
  - Staphylococcal infection [Unknown]
